FAERS Safety Report 4747927-9 (Version None)
Quarter: 2005Q3

REPORT INFORMATION
  Report Type: 
  Country: None (occurrence: None)
  Receive Date: 20050816
  Receipt Date: 20050808
  Transmission Date: 20060218
  Serious: Yes (Death)
  Sender: FDA-Public Use
  Company Number: 163-20785-05070258

PATIENT
  Age: 64 Year
  Sex: Male

DRUGS (6)
  1. THALOMID [Suspect]
     Indication: MULTIPLE MYELOMA
     Dosage: 150 MG, DAILY, ORAL
     Route: 048
     Dates: start: 20050615, end: 20050701
  2. CORGARD [Concomitant]
  3. MEVACOR [Concomitant]
  4. OXYFAST (OXYCODONE HYDROCHLORIDE) [Concomitant]
  5. IMDUR [Concomitant]
  6. OSCAL (CALCIUM CARBONATE) [Concomitant]

REACTIONS (1)
  - MULTI-ORGAN FAILURE [None]
